FAERS Safety Report 6985476-8 (Version None)
Quarter: 2010Q3

REPORT INFORMATION
  Report Type: 
  Country: None (occurrence: None)
  Receive Date: 20100915
  Receipt Date: 20100907
  Transmission Date: 20110219
  Serious: Yes (Death)
  Sender: FDA-Public Use
  Company Number: B0628710A

PATIENT
  Sex: Female
  Weight: 42 kg

DRUGS (12)
  1. TYKERB [Suspect]
     Indication: BREAST CANCER
     Dosage: 1250MG PER DAY
     Route: 048
     Dates: start: 20091106, end: 20091217
  2. XELODA [Concomitant]
     Indication: BREAST CANCER
     Dosage: 2400MG PER DAY
     Route: 048
     Dates: start: 20091106, end: 20091119
  3. XELODA [Concomitant]
     Dosage: 1800MG PER DAY
     Route: 048
     Dates: start: 20091127, end: 20091210
  4. PREDNISOLONE [Concomitant]
     Indication: INTERSTITIAL LUNG DISEASE
     Route: 048
     Dates: end: 20091225
  5. PYDOXAL [Concomitant]
     Indication: PROPHYLAXIS
     Route: 048
     Dates: start: 20091106, end: 20091225
  6. VOLTAREN [Concomitant]
     Indication: PAIN
     Route: 048
     Dates: end: 20091225
  7. NEUOMIL [Concomitant]
     Indication: PAIN
     Route: 048
     Dates: end: 20091225
  8. OXYCONTIN [Concomitant]
     Indication: PAIN
     Route: 048
     Dates: end: 20091225
  9. TAIPROTON [Concomitant]
     Indication: PEPTIC ULCER
     Route: 048
     Dates: end: 20091225
  10. ALUSA [Concomitant]
     Indication: PEPTIC ULCER
     Route: 048
     Dates: end: 20091225
  11. SPIRONOLACTONE [Concomitant]
     Route: 048
     Dates: end: 20091225
  12. SLOW-K [Concomitant]
     Route: 048
     Dates: end: 20091225

REACTIONS (9)
  - BLOOD BILIRUBIN INCREASED [None]
  - BLOOD PRESSURE DECREASED [None]
  - CARDIAC ARREST [None]
  - DISSEMINATED INTRAVASCULAR COAGULATION [None]
  - ERYTHEMA [None]
  - MALAISE [None]
  - MUSCULOSKELETAL PAIN [None]
  - PLATELET COUNT DECREASED [None]
  - SEPSIS [None]
